FAERS Safety Report 4366164-3 (Version None)
Quarter: 2004Q2

REPORT INFORMATION
  Report Type: 
  Country: None (occurrence: None)
  Receive Date: 20040526
  Receipt Date: 20040526
  Transmission Date: 20050107
  Serious: Yes (Other)
  Sender: FDA-Public Use
  Company Number: None

PATIENT
  Age: 55 Year
  Sex: Male
  Weight: 110.7 kg

DRUGS (6)
  1. SIMVASTATIN [Suspect]
  2. METOPROLOL TARTRATE [Concomitant]
  3. ALLOPURINOL [Concomitant]
  4. TERAZOSIN HCL [Concomitant]
  5. FINASTERIDE [Concomitant]
  6. FOLIC ACID [Concomitant]

REACTIONS (2)
  - BLOOD CREATINE PHOSPHOKINASE INCREASED [None]
  - LIVER FUNCTION TEST ABNORMAL [None]
